FAERS Safety Report 5885423-6 (Version None)
Quarter: 2008Q3

REPORT INFORMATION
  Report Type: 
  Country: None (occurrence: None)
  Receive Date: 20080818
  Receipt Date: 20070829
  Transmission Date: 20090109
  Serious: Yes (Hospitalization)
  Sender: FDA-Public Use
  Company Number: 20074006

PATIENT
  Age: 34 Year
  Sex: Male

DRUGS (1)
  1. LIORESAL [Suspect]
     Indication: MUSCLE SPASTICITY
     Dosage: 150 MCG, DAILY, INTRATHECAL + 75 MC
     Route: 037

REACTIONS (5)
  - DRUG INEFFECTIVE [None]
  - HYPERTONIA [None]
  - HYPOTONIA [None]
  - OVERDOSE [None]
  - SOMNOLENCE [None]
